FAERS Safety Report 8489461-9 (Version None)
Quarter: 2012Q3

REPORT INFORMATION
  Report Type: 
  Country: None (occurrence: None)
  Receive Date: 20120705
  Receipt Date: 20120626
  Transmission Date: 20120928
  Serious: Yes (Hospitalization, Other)
  Sender: FDA-Public Use
  Company Number: KR-JNJFOC-20120501417

PATIENT
  Sex: Male
  Weight: 63 kg

DRUGS (3)
  1. ABIRATERONE ACETATE [Suspect]
     Indication: PROSTATE CANCER METASTATIC
     Route: 048
     Dates: start: 20120328, end: 20120418
  2. PREDNISOLONE [Suspect]
     Indication: PROSTATE CANCER METASTATIC
     Route: 048
     Dates: start: 20120328, end: 20120418
  3. ABIRATERONE ACETATE [Suspect]
     Route: 048

REACTIONS (2)
  - DYSPNOEA [None]
  - DYSURIA [None]
